FAERS Safety Report 13194539 (Version 1)
Quarter: 2017Q1

REPORT INFORMATION
  Report Type: Spontaneous
  Country: US (occurrence: US)
  Receive Date: 20170207
  Receipt Date: 20170207
  Transmission Date: 20170428
  Serious: No
  Sender: FDA-Public Use
  Company Number: US-JAZZ-2016-US-005365

PATIENT
  Sex: Female

DRUGS (15)
  1. LEVETIRACETAM. [Concomitant]
     Active Substance: LEVETIRACETAM
  2. SERTRALINE [Concomitant]
     Active Substance: SERTRALINE HYDROCHLORIDE
  3. SUFENTA [Suspect]
     Active Substance: SUFENTANIL CITRATE
     Indication: SPINAL PAIN
  4. TIZANIDINE. [Concomitant]
     Active Substance: TIZANIDINE
  5. VALACYCLOVIR [Concomitant]
     Active Substance: VALACYCLOVIR HYDROCHLORIDE
  6. NUVIGIL [Concomitant]
     Active Substance: ARMODAFINIL
  7. ABILIFY [Concomitant]
     Active Substance: ARIPIPRAZOLE
  8. PREMARIN [Concomitant]
     Active Substance: ESTROGENS, CONJUGATED
  9. TEMAZEPAM. [Concomitant]
     Active Substance: TEMAZEPAM
  10. PRIALT [Suspect]
     Active Substance: ZICONOTIDE ACETATE
     Dosage: 0.043 ?G, QH
     Route: 037
     Dates: start: 20150917, end: 201509
  11. PRAMIPEXOLE DIHCL [Concomitant]
     Active Substance: PRAMIPEXOLE DIHYDROCHLORIDE
  12. BACLOFEN. [Suspect]
     Active Substance: BACLOFEN
     Indication: SPINAL PAIN
  13. HYDROCHLOROTHIAZIDE. [Concomitant]
     Active Substance: HYDROCHLOROTHIAZIDE
  14. PRIALT [Suspect]
     Active Substance: ZICONOTIDE ACETATE
     Indication: SPINAL PAIN
     Dosage: 0.022 ?G, QH
     Route: 037
     Dates: start: 20150828, end: 20150917
  15. BUPIVACAINE. [Suspect]
     Active Substance: BUPIVACAINE
     Indication: SPINAL PAIN

REACTIONS (2)
  - Nausea [Recovered/Resolved]
  - Diarrhoea [Recovered/Resolved]
